FAERS Safety Report 7368248-4 (Version None)
Quarter: 2011Q1

REPORT INFORMATION
  Report Type: 
  Country: None (occurrence: None)
  Receive Date: 20110323
  Receipt Date: 20110318
  Transmission Date: 20110831
  Serious: No
  Sender: FDA-Public Use
  Company Number: US-PFIZER INC-2011042472

PATIENT
  Sex: Male

DRUGS (7)
  1. HYDROXYZINE [Concomitant]
     Dosage: UNK
  2. NICOTROL [Suspect]
     Indication: SMOKING CESSATION THERAPY
     Dosage: 10 MG/ML
     Dates: start: 20100501
  3. LEVOTHYROXINE [Concomitant]
     Dosage: UNK
  4. ANDROGEL [Concomitant]
     Dosage: UNK
  5. SIMVASTATIN [Concomitant]
     Dosage: UNK
  6. LOVAZA [Concomitant]
     Dosage: UNK
  7. FENOFIBRATE [Concomitant]
     Dosage: UNK

REACTIONS (1)
  - DRUG INEFFECTIVE [None]
